FAERS Safety Report 18996761 (Version 1)
Quarter: 2021Q1

REPORT INFORMATION
  Report Type: Spontaneous
  Country: US (occurrence: US)
  Receive Date: 20210311
  Receipt Date: 20210311
  Transmission Date: 20210420
  Serious: No
  Sender: FDA-Public Use
  Company Number: US-HIKMA PHARMACEUTICALS USA INC.-US-H14001-20-02344

PATIENT
  Age: 76 Year
  Sex: Male

DRUGS (1)
  1. FLUTICASONE PROPIONATE. [Suspect]
     Active Substance: FLUTICASONE PROPIONATE
     Indication: NASAL CONGESTION
     Dosage: 2?3 SPRAYS
     Route: 045
     Dates: end: 20200510

REACTIONS (3)
  - Nasal crusting [Recovering/Resolving]
  - Expired product administered [Recovered/Resolved]
  - Nasal congestion [Recovering/Resolving]
